FAERS Safety Report 9835464 (Version 1)
Quarter: 2014Q1

REPORT INFORMATION
  Report Type: Spontaneous
  Country: US (occurrence: US)
  Receive Date: 20140122
  Receipt Date: 20140122
  Transmission Date: 20141002
  Serious: No
  Sender: FDA-Public Use
  Company Number: US-BRISTOL-MYERS SQUIBB COMPANY-19638709

PATIENT
  Age: 77 Year
  Sex: Female
  Weight: 104.31 kg

DRUGS (2)
  1. ELIQUIS [Suspect]
     Indication: ATRIAL FIBRILLATION
     Dates: start: 201310
  2. ELIQUIS [Suspect]
     Indication: COAGULOPATHY
     Dates: start: 201310

REACTIONS (3)
  - Fall [Unknown]
  - Dizziness [Unknown]
  - Wrong technique in drug usage process [Unknown]
